FAERS Safety Report 6969524-7 (Version None)
Quarter: 2010Q3

REPORT INFORMATION
  Report Type: 
  Country: None (occurrence: None)
  Receive Date: 20100907
  Receipt Date: 20100907
  Transmission Date: 20110219
  Serious: No
  Sender: FDA-Public Use
  Company Number: None

PATIENT
  Sex: Female
  Weight: 61.6892 kg

DRUGS (1)
  1. VENOFER [Suspect]
     Indication: SERUM FERRITIN DECREASED
     Dosage: 100MG ONCE A WEEK FOR 5 WKS
     Dates: start: 20100819, end: 20100902

REACTIONS (5)
  - ASTHENIA [None]
  - BLOOD PRESSURE INCREASED [None]
  - DIZZINESS [None]
  - PAIN IN EXTREMITY [None]
  - PAIN OF SKIN [None]
